FAERS Safety Report 4876964-9 (Version None)
Quarter: 2006Q1

REPORT INFORMATION
  Report Type: 
  Country: None (occurrence: None)
  Receive Date: 20060110
  Receipt Date: 20050422
  Transmission Date: 20060701
  Serious: Yes (Hospitalization)
  Sender: FDA-Public Use
  Company Number: CA-BOEHRINGER INGELHEIM PHARMACEUTICALS, INC.-2005-CN-00617CN

PATIENT
  Age: 50 Year
  Sex: Male

DRUGS (1)
  1. PERSANTIN [Suspect]
     Dates: start: 20041109

REACTIONS (3)
  - CONVULSION [None]
  - OPISTHOTONUS [None]
  - SPINAL CORD DISORDER [None]
